FAERS Safety Report 8906421 (Version 1)
Quarter: 2012Q4

REPORT INFORMATION
  Report Type: Spontaneous
  Country: US (occurrence: None)
  Receive Date: 20121108
  Receipt Date: 20121108
  Transmission Date: 20130627
  Serious: Yes (Hospitalization)
  Sender: FDA-Public Use
  Company Number: USA/USA/12/0026514

PATIENT
  Age: 20 Year
  Sex: Male

DRUGS (4)
  1. CITALOPRAM [Suspect]
  2. LEVETIRACETAM [Suspect]
  3. DOXEPIN [Suspect]
  4. LIPID EMULSION [Suspect]

REACTIONS (8)
  - Loss of consciousness [None]
  - Grand mal convulsion [None]
  - Cardiac arrest [None]
  - Hypotension [None]
  - Tachycardia [None]
  - Electrocardiogram QRS complex prolonged [None]
  - Pancreatitis [None]
  - Overdose [None]
